FAERS Safety Report 13768491 (Version 1)
Quarter: 2017Q3

REPORT INFORMATION
  Report Type: Spontaneous
  Country: US (occurrence: US)
  Receive Date: 20170719
  Receipt Date: 20170719
  Transmission Date: 20171127
  Serious: Yes (Hospitalization)
  Sender: FDA-Public Use
  Company Number: US-OTSUKA-2017_008981

PATIENT
  Sex: Female

DRUGS (1)
  1. REXULTI [Suspect]
     Active Substance: BREXPIPRAZOLE
     Indication: MAJOR DEPRESSION
     Dosage: UNK
     Route: 065
     Dates: start: 20170414, end: 201704

REACTIONS (3)
  - Malaise [Unknown]
  - Restlessness [Unknown]
  - Intentional overdose [Unknown]

NARRATIVE: CASE EVENT DATE: 201704
